FAERS Safety Report 16049958 (Version 1)
Quarter: 2019Q1

REPORT INFORMATION
  Report Type: Spontaneous
  Country: US (occurrence: US)
  Receive Date: 20190308
  Receipt Date: 20190308
  Transmission Date: 20190418
  Serious: Yes (Death, Other)
  Sender: FDA-Public Use
  Company Number: US-009507513-1903USA003028

PATIENT
  Sex: Male

DRUGS (8)
  1. HEMP [Suspect]
     Active Substance: HEMP
     Dosage: CAUSE RANK: 5
     Route: 051
  2. REMERON [Suspect]
     Active Substance: MIRTAZAPINE
     Dosage: CAUSE RANK: 4
     Route: 051
  3. HEMP [Suspect]
     Active Substance: HEMP
     Dosage: CAUSE RANK: 5
     Route: 051
  4. METHADONE HYDROCHLORIDE. [Suspect]
     Active Substance: METHADONE HYDROCHLORIDE
     Dosage: CAUSE RANK: 2
     Route: 051
  5. CLONAZEPAM. [Suspect]
     Active Substance: CLONAZEPAM
     Dosage: CAUSE RANK: 3
     Route: 051
  6. HEMP [Suspect]
     Active Substance: HEMP
     Dosage: CAUSE RANK: 5
     Route: 051
  7. ALPRAZOLAM. [Suspect]
     Active Substance: ALPRAZOLAM
     Dosage: CAUSE RANK: 1
     Route: 051
  8. ALPRAZOLAM. [Suspect]
     Active Substance: ALPRAZOLAM
     Dosage: CAUSE RANK: 1
     Route: 051

REACTIONS (3)
  - Cardiac arrest [Unknown]
  - Respiratory arrest [Unknown]
  - Drug abuse [Fatal]
